FAERS Safety Report 7581628-7 (Version None)
Quarter: 2011Q2

REPORT INFORMATION
  Report Type: 
  Country: None (occurrence: None)
  Receive Date: 20110629
  Receipt Date: 20101213
  Transmission Date: 20111010
  Serious: No
  Sender: FDA-Public Use
  Company Number: US-BAYER-2010-008474

PATIENT
  Age: 25 Year
  Sex: Female

DRUGS (2)
  1. MAGNEVIST [Suspect]
     Indication: PRODUCT USED FOR UNKNOWN INDICATION
     Dosage: UNK
     Route: 042
     Dates: start: 20101208, end: 20101208
  2. I.V. SOLUTIONS [Suspect]
     Dosage: UNK
     Route: 042
     Dates: start: 20101208, end: 20101208

REACTIONS (5)
  - URTICARIA [None]
  - BURNING SENSATION [None]
  - PRURITUS [None]
  - THROAT IRRITATION [None]
  - ERYTHEMA [None]
